FAERS Safety Report 17516657 (Version 2)
Quarter: 2020Q1

REPORT INFORMATION
  Report Type: Spontaneous
  Country: FR (occurrence: FR)
  Receive Date: 20200309
  Receipt Date: 20200316
  Transmission Date: 20200409
  Serious: Yes (Other)
  Sender: FDA-Public Use
  Company Number: FR-MYLANLABS-2020M1023683

PATIENT
  Age: 11 Year
  Sex: Male
  Weight: 46 kg

DRUGS (14)
  1. ENANTONE LP [Suspect]
     Active Substance: LEUPROLIDE ACETATE
     Indication: BLOOD GROWTH HORMONE DECREASED
     Dosage: 1 DOSAGE FORM, 28D CYCLE
     Route: 058
     Dates: start: 201910
  2. AVASTIN [Suspect]
     Active Substance: BEVACIZUMAB
     Indication: MEDULLOBLASTOMA RECURRENT
     Dosage: 10 MILLIGRAM/KILOGRAM, QW
     Route: 042
     Dates: start: 20190429
  3. CYTARABINE. [Suspect]
     Active Substance: CYTARABINE
     Indication: MEDULLOBLASTOMA RECURRENT
     Dosage: 60 MILLIGRAM, QW
     Route: 037
     Dates: start: 20190513
  4. ETOPOSIDE. [Suspect]
     Active Substance: ETOPOSIDE
     Indication: MEDULLOBLASTOMA RECURRENT
     Dosage: 5 INJECTIONS TOUTES LES 4SEMAINES Q4WEEKS
     Route: 039
     Dates: start: 20190429
  5. THALIDOMIDE [Suspect]
     Active Substance: THALIDOMIDE
     Indication: MEDULLOBLASTOMA RECURRENT
     Dosage: 3 MILLIGRAM/KILOGRAM
     Route: 048
     Dates: start: 20190429, end: 20191115
  6. SULFAMETHOXAZOLE [Concomitant]
     Active Substance: SULFAMETHOXAZOLE
     Indication: OPPORTUNISTIC INFECTION PROPHYLAXIS
     Dosage: 2400 MILLIGRAM, QW
     Route: 048
  7. SULFAMETHOXAZOLE [Concomitant]
     Active Substance: SULFAMETHOXAZOLE
     Dosage: 800 MILLIGRAM, QW
     Route: 048
  8. CELECOXIB. [Suspect]
     Active Substance: CELECOXIB
     Indication: MEDULLOBLASTOMA RECURRENT
     Dosage: 2 DOSAGE FORM, QD
     Route: 048
     Dates: start: 20190429
  9. CYCLOPHOSPHAMIDE. [Suspect]
     Active Substance: CYCLOPHOSPHAMIDE
     Indication: MEDULLOBLASTOMA RECURRENT
     Dosage: 2.5 MILLIGRAM/KILOGRAM, (MAX 100MG), LES 3 DERNI?RES SEMAINES DE CHAQUE PARTIE DE CHAQUE CYCLE
     Route: 048
     Dates: start: 20190520
  10. FENOFIBRATE. [Suspect]
     Active Substance: FENOFIBRATE
     Indication: MEDULLOBLASTOMA RECURRENT
     Dosage: 90 MILLIGRAM/SQ. METER, QD
     Route: 048
     Dates: start: 20190429
  11. CYTARABINE. [Suspect]
     Active Substance: CYTARABINE
     Dosage: 60 MILLIGRAM, 1/WEEK
     Route: 037
     Dates: start: 20190513
  12. TRIMETHOPRIME [Concomitant]
     Active Substance: TRIMETHOPRIM
     Indication: OPPORTUNISTIC INFECTION PROPHYLAXIS
     Dosage: 480 MILLIGRAM, QW
     Route: 048
  13. ETOPOSIDE. [Suspect]
     Active Substance: ETOPOSIDE
     Indication: MEDULLOBLASTOMA RECURRENT
     Dosage: 35-50MG/M?, LES 3 PREMI?RES SEMAINES DE CHAQUE PARTIE DE CHAQUE CYCLE
     Route: 048
     Dates: start: 20190429
  14. TRIMETHOPRIME [Concomitant]
     Active Substance: TRIMETHOPRIM
     Dosage: 160 MILLIGRAM, QW
     Route: 048

REACTIONS (2)
  - Condition aggravated [Not Recovered/Not Resolved]
  - Bipolar disorder [Not Recovered/Not Resolved]

NARRATIVE: CASE EVENT DATE: 201910
